FAERS Safety Report 9433826 (Version 3)
Quarter: 2014Q1

REPORT INFORMATION
  Report Type: Report from Study
  Country: JP (occurrence: JP)
  Receive Date: 20130731
  Receipt Date: 20140225
  Transmission Date: 20141002
  Serious: Yes (Hospitalization)
  Sender: FDA-Public Use
  Company Number: JP-ASTRAZENECA-2013SE56977

PATIENT
  Age: 40 Year
  Sex: Male

DRUGS (16)
  1. CRESTOR [Suspect]
     Indication: HYPERCHOLESTEROLAEMIA
     Route: 048
     Dates: start: 20110926
  2. GLIMICRON [Concomitant]
     Indication: DIABETES MELLITUS
     Route: 065
     Dates: start: 20101112
  3. JANUVIA [Concomitant]
     Indication: DIABETES MELLITUS
     Route: 065
     Dates: start: 20110221
  4. METGLUCO [Concomitant]
     Indication: DIABETES MELLITUS
     Route: 065
     Dates: start: 20110711, end: 20120617
  5. METGLUCO [Concomitant]
     Indication: DIABETES MELLITUS
     Route: 065
     Dates: start: 20120618
  6. DIOVAN [Concomitant]
     Indication: HYPERTENSION
     Route: 065
     Dates: start: 20101112
  7. AMLODIN [Concomitant]
     Indication: HYPERTENSION
     Route: 065
     Dates: start: 20110221, end: 20111127
  8. ADALAT-CR [Concomitant]
     Indication: HYPERTENSION
     Route: 065
     Dates: start: 20111128, end: 20120227
  9. ADALAT-CR [Concomitant]
     Indication: HYPERTENSION
     Route: 065
     Dates: start: 20120228
  10. CALONAL [Concomitant]
     Route: 048
     Dates: start: 20110914, end: 20110926
  11. ISODINE [Concomitant]
     Dosage: OPTIMAL DOSE
     Route: 065
     Dates: start: 20110914, end: 20110926
  12. SELBEX [Concomitant]
     Route: 048
     Dates: start: 20111125, end: 20111130
  13. PHELLOBERIN [Concomitant]
     Route: 048
     Dates: start: 20111125, end: 20111130
  14. MEIACT [Concomitant]
     Route: 065
     Dates: start: 20111125, end: 20111130
  15. LOXONIN [Concomitant]
     Route: 048
     Dates: start: 20111125, end: 20111130
  16. ALLEGRA [Concomitant]
     Route: 048
     Dates: start: 20120227

REACTIONS (2)
  - Large intestine polyp [Recovering/Resolving]
  - Nasopharyngitis [Recovered/Resolved]
